FAERS Safety Report 15044145 (Version 2)
Quarter: 2018Q3

REPORT INFORMATION
  Report Type: Spontaneous
  Country: FR (occurrence: FR)
  Receive Date: 20180621
  Receipt Date: 20180705
  Transmission Date: 20181010
  Serious: Yes (Other)
  Sender: FDA-Public Use
  Company Number: PHHY2018FR024770

PATIENT
  Age: 38 Year
  Sex: Male

DRUGS (2)
  1. FORMOTEROL [Suspect]
     Active Substance: FORMOTEROL
     Indication: ASTHMA
     Dosage: 2 DF (UG/LITRE), QD
     Route: 055
  2. FORMOTEROL [Suspect]
     Active Substance: FORMOTEROL
     Dosage: UNK UNK,UNKNOWN FREQUENCY
     Route: 065

REACTIONS (3)
  - Foreign body aspiration [Unknown]
  - Throat irritation [Unknown]
  - Drug tolerance [Unknown]

NARRATIVE: CASE EVENT DATE: 20171120
